FAERS Safety Report 14521983 (Version 2)
Quarter: 2018Q1

REPORT INFORMATION
  Report Type: Report from Study
  Country: US (occurrence: US)
  Receive Date: 20180212
  Receipt Date: 20180228
  Transmission Date: 20180509
  Serious: No
  Sender: FDA-Public Use
  Company Number: US-BAUSCH-BL-2018-003765

PATIENT
  Age: 56 Year
  Sex: Male
  Weight: 113.5 kg

DRUGS (3)
  1. LACTULOSE. [Suspect]
     Active Substance: LACTULOSE
     Dosage: ONCE OR TWICE A DAY BASED ON BODY REQUIREMENT
     Route: 065
     Dates: start: 2017
  2. XIFAXAN [Suspect]
     Active Substance: RIFAXIMIN
     Indication: HEPATIC CIRRHOSIS
     Route: 065
     Dates: start: 2016
  3. LACTULOSE. [Suspect]
     Active Substance: LACTULOSE
     Indication: BOWEL MOVEMENT IRREGULARITY
     Route: 065
     Dates: start: 2013

REACTIONS (4)
  - Product supply issue [Unknown]
  - Diarrhoea [Recovered/Resolved]
  - Fatigue [Recovered/Resolved]
  - Ammonia increased [Recovered/Resolved]

NARRATIVE: CASE EVENT DATE: 2017
